FAERS Safety Report 14031493 (Version 1)
Quarter: 2017Q4

REPORT INFORMATION
  Report Type: Spontaneous
  Country: CO (occurrence: CO)
  Receive Date: 20171002
  Receipt Date: 20171002
  Transmission Date: 20180321
  Serious: Yes (Hospitalization, Other)
  Sender: FDA-Public Use
  Company Number: CO-BAYER-2017-187578

PATIENT
  Age: 40 Year
  Sex: Female
  Weight: 72 kg

DRUGS (3)
  1. ULTRAVIST? 300 [Suspect]
     Active Substance: IOPROMIDE
     Indication: COMPUTERISED TOMOGRAM PELVIS
  2. ULTRAVIST? 300 [Suspect]
     Active Substance: IOPROMIDE
     Indication: COMPUTERISED TOMOGRAM ABDOMEN
     Dosage: 100 ML, ONCE
     Route: 042
     Dates: start: 20170921, end: 20170921
  3. ULTRAVIST? 300 [Suspect]
     Active Substance: IOPROMIDE
     Indication: COMPUTERISED TOMOGRAM THORAX

REACTIONS (17)
  - Seizure [Recovered/Resolved]
  - Hypoperfusion [Recovered/Resolved]
  - Tonic clonic movements [Recovered/Resolved]
  - Rash generalised [Recovered/Resolved]
  - General physical condition normal [Recovered/Resolved]
  - Hypotonia [Recovered/Resolved]
  - Dizziness [Recovered/Resolved]
  - Hyperhidrosis [Recovered/Resolved]
  - Generalised erythema [Recovered/Resolved]
  - Capillary nail refill test abnormal [Recovered/Resolved]
  - Syncope [Recovered/Resolved]
  - Contrast media allergy [Recovered/Resolved]
  - Cyanosis [Recovered/Resolved with Sequelae]
  - Rash erythematous [Recovered/Resolved]
  - Rales [Recovered/Resolved]
  - Oxygen saturation decreased [Recovered/Resolved]
  - Angioedema [Recovered/Resolved]

NARRATIVE: CASE EVENT DATE: 20170921
